FAERS Safety Report 8662652 (Version 2)
Quarter: 2013Q4

REPORT INFORMATION
  Report Type: Spontaneous
  Country: NO (occurrence: NO)
  Receive Date: 20120712
  Receipt Date: 20131106
  Transmission Date: 20140711
  Serious: Yes (Death)
  Sender: FDA-Public Use
  Company Number: NO-009507513-1207NOR000877

PATIENT
  Age: 77 Year
  Sex: Female

DRUGS (7)
  1. INTEGRILIN [Suspect]
     Indication: ACUTE MYOCARDIAL INFARCTION
     Dosage: UNK
     Route: 042
     Dates: start: 20120407, end: 20120408
  2. ASPIRIN [Suspect]
     Indication: ACUTE MYOCARDIAL INFARCTION
     Dosage: 300 MG, UNK
     Route: 048
     Dates: start: 20120407, end: 20120407
  3. PLAVIX [Suspect]
     Indication: ACUTE MYOCARDIAL INFARCTION
     Dosage: 600 MG, UNK
     Route: 048
     Dates: start: 20120407, end: 20120407
  4. HEPARIN [Suspect]
     Indication: ACUTE MYOCARDIAL INFARCTION
     Dosage: 5000 IU, UNK
     Dates: start: 20120407
  5. TITRALAC (CALCIUM CARBONATE (+) GLYCINE) [Concomitant]
  6. ALENDRONIC ACID [Concomitant]
  7. CALCIGRAN FORTE [Concomitant]

REACTIONS (1)
  - Pulmonary haemorrhage [Fatal]
